FAERS Safety Report 13071181 (Version 1)
Quarter: 2016Q4

REPORT INFORMATION
  Report Type: Spontaneous
  Country: FR (occurrence: FR)
  Receive Date: 20161229
  Receipt Date: 20161229
  Transmission Date: 20170207
  Serious: Yes (Other)
  Sender: FDA-Public Use
  Company Number: FR-EMD SERONO-8132870

PATIENT
  Age: 27 Year
  Sex: Female
  Weight: 65 kg

DRUGS (4)
  1. REBIF [Suspect]
     Active Substance: INTERFERON BETA-1A
     Dates: start: 201601
  2. REBIF [Suspect]
     Active Substance: INTERFERON BETA-1A
     Dates: start: 201601
  3. REBIF [Suspect]
     Active Substance: INTERFERON BETA-1A
     Dates: start: 201601
  4. REBIF [Suspect]
     Active Substance: INTERFERON BETA-1A
     Indication: MULTIPLE SCLEROSIS
     Dosage: FORM STRENGTH: 44MCG/0.5 ML, INJECTABLE SOLUTION IN PEN
     Dates: start: 201509, end: 201512

REACTIONS (2)
  - Maternal exposure during pregnancy [Recovered/Resolved]
  - Abortion spontaneous [Recovered/Resolved]

NARRATIVE: CASE EVENT DATE: 201601
